FAERS Safety Report 6782723-2 (Version None)
Quarter: 2010Q2

REPORT INFORMATION
  Report Type: 
  Country: None (occurrence: None)
  Receive Date: 20100621
  Receipt Date: 20100610
  Transmission Date: 20101027
  Serious: Yes (Hospitalization)
  Sender: FDA-Public Use
  Company Number: PHHY2010FR18099

PATIENT
  Sex: Female

DRUGS (6)
  1. CERTICAN [Suspect]
     Indication: RENAL TRANSPLANT
     Dosage: 4.25 MG DAILY
     Dates: start: 20100105, end: 20100306
  2. TRIATEC [Suspect]
     Indication: HYPERTENSION
     Dosage: 2.5 MG DAILY
     Route: 048
     Dates: start: 20091006, end: 20100306
  3. MYFORTIC [Concomitant]
     Indication: RENAL TRANSPLANT
     Dosage: 720 MG DAILY
     Dates: start: 20090816
  4. UN-ALFA [Concomitant]
     Indication: HYPERPARATHYROIDISM
     Dosage: 0.25 MICOG
     Route: 048
     Dates: start: 20090911
  5. LASIX [Concomitant]
     Indication: HYPERTENSION
     Dosage: 40 MG DAILY
     Route: 048
     Dates: start: 20090911
  6. TAHOR [Concomitant]
     Indication: HYPERCHOLESTEROLAEMIA
     Dosage: 20 MG DAILY
     Route: 048
     Dates: start: 20100202

REACTIONS (3)
  - ANAPHYLACTIC REACTION [None]
  - DYSPNOEA [None]
  - TONGUE OEDEMA [None]
